FAERS Safety Report 12900420 (Version 3)
Quarter: 2017Q4

REPORT INFORMATION
  Report Type: Report from Study
  Country: US (occurrence: US)
  Receive Date: 20161101
  Receipt Date: 20171107
  Transmission Date: 20180320
  Serious: Yes (Hospitalization, Other)
  Sender: FDA-Public Use
  Company Number: US-NAPPMUNDI-USA-2016-0134383

PATIENT
  Age: 52 Year
  Sex: Male

DRUGS (4)
  1. OXYCODONE HYDROCHLORIDE. [Suspect]
     Active Substance: OXYCODONE HYDROCHLORIDE
     Dosage: 240 MG (80MG X 3 TABLETS), Q12H
     Route: 048
     Dates: start: 20160901
  2. OXYCODONE HYDROCHLORIDE. [Suspect]
     Active Substance: OXYCODONE HYDROCHLORIDE
     Dosage: UNK
     Route: 048
     Dates: start: 2010
  3. OXYCODONE HYDROCHLORIDE. [Suspect]
     Active Substance: OXYCODONE HYDROCHLORIDE
     Indication: PAIN
     Dosage: 240 MG,(80 MG X 3 TABLETS)  Q12H
     Route: 048
  4. OXYCODONE/ ACETAMINOPHEN TABLETS [Concomitant]
     Active Substance: ACETAMINOPHEN\OXYCODONE HYDROCHLORIDE
     Indication: PRODUCT USED FOR UNKNOWN INDICATION
     Dosage: 1 DF, (TOOK 5-7 AT A TIME)
     Route: 048

REACTIONS (11)
  - Drug ineffective [Unknown]
  - Muscle injury [Unknown]
  - Muscle spasms [Not Recovered/Not Resolved]
  - Neck injury [Unknown]
  - Hepatic neoplasm [Unknown]
  - Pain [Not Recovered/Not Resolved]
  - Fall [Recovered/Resolved]
  - Intentional product use issue [Unknown]
  - Movement disorder [Recovered/Resolved]
  - Musculoskeletal stiffness [Not Recovered/Not Resolved]
  - Tendon rupture [Unknown]

NARRATIVE: CASE EVENT DATE: 201608
